FAERS Safety Report 15570887 (Version 1)
Quarter: 2018Q4

REPORT INFORMATION
  Report Type: Spontaneous
  Country: BG (occurrence: BG)
  Receive Date: 20181031
  Receipt Date: 20181031
  Transmission Date: 20190205
  Serious: Yes (Hospitalization, Other)
  Sender: FDA-Public Use
  Company Number: BG-PFIZER INC-2018438999

PATIENT
  Age: 55 Year
  Sex: Male

DRUGS (2)
  1. LYRICA [Suspect]
     Active Substance: PREGABALIN
     Indication: NEURALGIA
     Dosage: 75 MG, UNK
  2. NEUROLIPON [Concomitant]

REACTIONS (1)
  - Hypertensive crisis [Recovering/Resolving]
